FAERS Safety Report 4769102-4 (Version None)
Quarter: 2005Q3

REPORT INFORMATION
  Report Type: 
  Country: None (occurrence: None)
  Receive Date: 20050912
  Receipt Date: 20040916
  Transmission Date: 20060218
  Serious: Yes (Hospitalization)
  Sender: FDA-Public Use
  Company Number: 2004-BP-04702BP

PATIENT
  Sex: Female

DRUGS (1)
  1. VIRAMUNE [Suspect]
     Dosage: 200 MG, PO
     Route: 048

REACTIONS (2)
  - PYREXIA [None]
  - RASH [None]
